FAERS Safety Report 23365764 (Version 1)
Quarter: 2024Q1

REPORT INFORMATION
  Report Type: Spontaneous
  Country: ES (occurrence: ES)
  Receive Date: 20240104
  Receipt Date: 20240104
  Transmission Date: 20240409
  Serious: Yes (Hospitalization)
  Sender: FDA-Public Use
  Company Number: None

PATIENT
  Age: 34 Year
  Sex: Female

DRUGS (7)
  1. DULOXETINE [Suspect]
     Active Substance: DULOXETINE
     Indication: Anxiety
     Dosage: 60 MILLIGRAM, QD (EVERY 24 HOURS)
     Route: 048
     Dates: start: 20231004, end: 20231116
  2. PAROXETINE [Suspect]
     Active Substance: PAROXETINE
     Indication: Anxiety
     Dosage: 150 MILLIGRAM, QD (EVERY 24 HOURS)
     Route: 048
     Dates: start: 20231004, end: 20231108
  3. FOLI DOCE [Concomitant]
     Indication: Product used for unknown indication
     Dosage: 1 TABLET BEFORE BREAKFAST, 28 TABLET
     Route: 048
     Dates: start: 20220908
  4. DIAZEPAM [Concomitant]
     Active Substance: DIAZEPAM
     Indication: Conversion disorder
     Dosage: 10 MILLIGRAM, QD (AT DINNER), 30TABLET
     Route: 048
     Dates: start: 20220510
  5. LYRICA [Concomitant]
     Active Substance: PREGABALIN
     Indication: Conversion disorder
     Dosage: 150 MILLIGRAM, TID (BREAKFAST LUNCH DINNER), 56 CAPSULE
     Route: 048
     Dates: start: 20230529
  6. CRESTOR [Concomitant]
     Active Substance: ROSUVASTATIN CALCIUM
     Indication: Hypothyroidism
     Dosage: 10 MILLIGRAM, QD (DINNER), 28TABLET
     Route: 048
     Dates: start: 20211221
  7. LEVOTHYROXINE SODIUM [Concomitant]
     Active Substance: LEVOTHYROXINE SODIUM
     Indication: Product used for unknown indication
     Dosage: 100 MICROGRAM, QD (BEFORE BREAKFAST)  (100 TABLET)
     Route: 048
     Dates: start: 20220908

REACTIONS (3)
  - Serotonin syndrome [Recovered/Resolved]
  - Product administration error [Recovered/Resolved]
  - Medication error [Recovered/Resolved]

NARRATIVE: CASE EVENT DATE: 20231108
